FAERS Safety Report 10225539 (Version 1)
Quarter: 2014Q2

REPORT INFORMATION
  Report Type: Spontaneous
  Country: US (occurrence: US)
  Receive Date: 20140609
  Receipt Date: 20140609
  Transmission Date: 20141212
  Serious: Yes (Hospitalization)
  Sender: FDA-Public Use
  Company Number: US-ASTELLAS-2014US001152

PATIENT
  Age: 45 Year
  Sex: Female
  Weight: 50 kg

DRUGS (13)
  1. PROGRAF [Suspect]
     Indication: RENAL TRANSPLANT
     Route: 048
     Dates: start: 20090822, end: 200912
  2. PROGRAF [Suspect]
     Route: 048
     Dates: start: 200912, end: 200912
  3. PROGRAF [Suspect]
     Route: 048
     Dates: start: 200912
  4. AMLODIPINE [Concomitant]
     Indication: HYPERTENSION
     Route: 048
     Dates: start: 20091030
  5. AZATHIOPRINE [Concomitant]
     Indication: IMMUNOSUPPRESSION
     Route: 048
     Dates: start: 20090822
  6. CINACALCET [Concomitant]
     Indication: HYPERPARATHYROIDISM
     Route: 048
     Dates: start: 20091005
  7. ARANESP [Concomitant]
     Indication: ANAEMIA
     Route: 058
     Dates: start: 20091203
  8. LEVOTHYROXINE [Concomitant]
     Indication: HYPOTHYROIDISM
     Route: 048
     Dates: start: 20090908
  9. BACTRIM [Concomitant]
     Indication: PROPHYLAXIS
     Dosage: 400/80 MG, UID/QD
     Route: 048
     Dates: start: 20090829
  10. LACTULOSE [Concomitant]
     Indication: CONSTIPATION
     Route: 048
     Dates: start: 20090902
  11. ISONIAZID [Concomitant]
     Indication: TUBERCULIN TEST POSITIVE
     Route: 048
     Dates: start: 20091005
  12. PYRIDOXINE                         /00058902/ [Concomitant]
     Indication: TUBERCULIN TEST POSITIVE
     Route: 048
     Dates: start: 20091005
  13. ERGOCALCIFEROL [Concomitant]
     Indication: PRODUCT USED FOR UNKNOWN INDICATION
     Route: 048
     Dates: start: 20091005

REACTIONS (2)
  - Blood creatinine increased [Recovered/Resolved]
  - Immunosuppressant drug level increased [Unknown]
